FAERS Safety Report 7950631-7 (Version None)
Quarter: 2011Q4

REPORT INFORMATION
  Report Type: 
  Country: None (occurrence: None)
  Receive Date: 20111130
  Receipt Date: 20111123
  Transmission Date: 20120403
  Serious: Yes (Hospitalization)
  Sender: FDA-Public Use
  Company Number: AU-ROCHE-GNE324551

PATIENT
  Sex: Male

DRUGS (8)
  1. LUCENTIS [Suspect]
     Indication: AGE-RELATED MACULAR DEGENERATION
     Route: 050
     Dates: start: 20100927
  2. LUCENTIS [Suspect]
     Route: 050
  3. TENORMIN 50 [Concomitant]
  4. LUCENTIS [Suspect]
     Dosage: UNK
     Route: 050
     Dates: start: 20110110
  5. FLUTICASONE PROPIONATE/SALMETEROL [Concomitant]
  6. ADALAT [Concomitant]
  7. CRESTOR [Concomitant]
  8. LUCENTIS [Suspect]
     Route: 050

REACTIONS (3)
  - MYOCARDIAL INFARCTION [None]
  - RETINAL HAEMORRHAGE [None]
  - MACULAR OEDEMA [None]
